FAERS Safety Report 24444799 (Version 2)
Quarter: 2024Q4

REPORT INFORMATION
  Report Type: Report from Study
  Country: ZA (occurrence: ZA)
  Receive Date: 20241016
  Receipt Date: 20241017
  Transmission Date: 20250115
  Serious: No
  Sender: ROCHE
  Company Number: ZA-ROCHE-2851585

PATIENT
  Age: 73 Year
  Sex: Female
  Weight: 70.0 kg

DRUGS (2)
  1. MABTHERA [Suspect]
     Active Substance: RITUXIMAB
     Indication: Rheumatoid arthritis
     Route: 041
  2. MABTHERA [Suspect]
     Active Substance: RITUXIMAB
     Dosage: REPEATED 6-MONTHLY
     Route: 041

REACTIONS (9)
  - Blood creatinine increased [Unknown]
  - Arthritis [Unknown]
  - Blood creatinine increased [Unknown]
  - Urinary tract infection [Unknown]
  - C-reactive protein increased [Unknown]
  - Haemoglobin decreased [Unknown]
  - White blood cell count increased [Unknown]
  - Bronchitis [Recovered/Resolved]
  - Illness [Unknown]

NARRATIVE: CASE EVENT DATE: 20231008
